FAERS Safety Report 6441277-0 (Version None)
Quarter: 2009Q4

REPORT INFORMATION
  Report Type: 
  Country: None (occurrence: None)
  Receive Date: 20091113
  Receipt Date: 20091113
  Transmission Date: 20100525
  Serious: Yes (Life-Threatening, Hospitalization)
  Sender: FDA-Public Use
  Company Number: None

PATIENT
  Age: 50 Year
  Sex: Male
  Weight: 86 kg

DRUGS (1)
  1. METHADONE HCL [Suspect]
     Dosage: 40MG Q6H PO
     Route: 048
     Dates: start: 20081030, end: 20091101

REACTIONS (5)
  - ARRHYTHMIA [None]
  - NAUSEA [None]
  - TORSADE DE POINTES [None]
  - VENTRICULAR TACHYCARDIA [None]
  - VOMITING [None]
